FAERS Safety Report 6679880-5 (Version None)
Quarter: 2010Q2

REPORT INFORMATION
  Report Type: 
  Country: None (occurrence: None)
  Receive Date: 20100413
  Receipt Date: 20100407
  Transmission Date: 20101027
  Serious: Yes (Death, Hospitalization, Other)
  Sender: FDA-Public Use
  Company Number: US-ELI_LILLY_AND_COMPANY-US201004001850

PATIENT
  Sex: Male

DRUGS (3)
  1. HUMULIN N [Suspect]
     Indication: DIABETES MELLITUS
     Dosage: UNK, AS NEEDED
  2. LANTUS [Concomitant]
  3. ANTIHYPERTENSIVES [Concomitant]

REACTIONS (15)
  - BLINDNESS [None]
  - BLOOD GLUCOSE INCREASED [None]
  - BRAIN DEATH [None]
  - BRAIN OEDEMA [None]
  - CATARACT [None]
  - CORONARY ARTERY OCCLUSION [None]
  - DIABETIC NEUROPATHY [None]
  - FATIGUE [None]
  - GRAFT COMPLICATION [None]
  - NECROSIS [None]
  - NEUROPATHY PERIPHERAL [None]
  - RENAL FAILURE [None]
  - RESUSCITATION [None]
  - RETINAL HAEMORRHAGE [None]
  - VOMITING [None]
